FAERS Safety Report 21311092 (Version 1)
Quarter: 2022Q3

REPORT INFORMATION
  Report Type: Spontaneous
  Country: US (occurrence: None)
  Receive Date: 20220909
  Receipt Date: 20220909
  Transmission Date: 20221027
  Serious: No
  Sender: FDA-Public Use
  Company Number: US-ARIS GLOBAL-202201-0033

PATIENT
  Sex: Female

DRUGS (8)
  1. OXERVATE [Suspect]
     Active Substance: CENEGERMIN-BKBJ
     Indication: Neurotrophic keratopathy
     Route: 047
     Dates: start: 20211216
  2. OXERVATE [Suspect]
     Active Substance: CENEGERMIN-BKBJ
     Indication: Hypoaesthesia eye
  3. TRAZODONE [Concomitant]
     Active Substance: TRAZODONE HYDROCHLORIDE
  4. METOPROLOL SUCCINATE [Concomitant]
     Active Substance: METOPROLOL SUCCINATE
  5. LORAZEPAM [Concomitant]
     Active Substance: LORAZEPAM
  6. SIMVASTATIN [Concomitant]
     Active Substance: SIMVASTATIN
  7. QUETIAPINE FUMARATE [Concomitant]
     Active Substance: QUETIAPINE FUMARATE
  8. LATANOPROST [Concomitant]
     Active Substance: LATANOPROST

REACTIONS (7)
  - Eye pain [Recovering/Resolving]
  - Eyelid pain [Recovering/Resolving]
  - Device use issue [Unknown]
  - Treatment noncompliance [Unknown]
  - Pain [Unknown]
  - Diarrhoea [Unknown]
  - Sleep disorder [Unknown]
